FAERS Safety Report 20082716 (Version 1)
Quarter: 2021Q4

REPORT INFORMATION
  Report Type: Spontaneous
  Country: GB (occurrence: GB)
  Receive Date: 20211117
  Receipt Date: 20211117
  Transmission Date: 20220303
  Serious: Yes (Other)
  Sender: FDA-Public Use
  Company Number: GB-PFIZER INC-202101512115

PATIENT
  Age: 29 Year
  Sex: Male

DRUGS (2)
  1. COLESTID [Interacting]
     Active Substance: COLESTIPOL HYDROCHLORIDE
     Dosage: UNK
  2. PRASUGREL [Interacting]
     Active Substance: PRASUGREL
     Dosage: 5 MG

REACTIONS (2)
  - Acute myocardial infarction [Unknown]
  - Drug interaction [Unknown]
